FAERS Safety Report 10402617 (Version 4)
Quarter: 2014Q4

REPORT INFORMATION
  Report Type: Spontaneous
  Country: US (occurrence: US)
  Receive Date: 20140822
  Receipt Date: 20141001
  Transmission Date: 20150528
  Serious: No
  Sender: FDA-Public Use
  Company Number: US-009507513-1408USA011204

PATIENT
  Age: 35 Year
  Sex: Female
  Weight: 151.47 kg

DRUGS (2)
  1. NEXPLANON [Suspect]
     Active Substance: ETONOGESTREL
     Dosage: UNK, SECOND NEXPLANON
     Route: 059
     Dates: start: 201408
  2. NEXPLANON [Suspect]
     Active Substance: ETONOGESTREL
     Dosage: UNK
     Route: 059
     Dates: start: 20140819, end: 20140819

REACTIONS (2)
  - No adverse event [Unknown]
  - Device difficult to use [Recovered/Resolved]

NARRATIVE: CASE EVENT DATE: 20140819
